FAERS Safety Report 6268797-6 (Version None)
Quarter: 2009Q3

REPORT INFORMATION
  Report Type: 
  Country: None (occurrence: None)
  Receive Date: 20090710
  Receipt Date: 20090710
  Transmission Date: 20100115
  Serious: Yes (Other)
  Sender: FDA-Public Use
  Company Number: None

PATIENT
  Sex: Male
  Weight: 1.01 kg

DRUGS (1)
  1. DEXAMETHASONE UNK UNK [Suspect]

REACTIONS (1)
  - CARDIOMYOPATHY [None]
